FAERS Safety Report 24770908 (Version 1)
Quarter: 2024Q4

REPORT INFORMATION
  Report Type: Spontaneous
  Country: FR (occurrence: FR)
  Receive Date: 20241224
  Receipt Date: 20241224
  Transmission Date: 20250115
  Serious: Yes (Hospitalization)
  Sender: ROCHE
  Company Number: None

PATIENT
  Age: 86 Year
  Sex: Female
  Weight: 85 kg

DRUGS (1)
  1. COLUMVI [Suspect]
     Active Substance: GLOFITAMAB-GXBM
     Indication: Follicular lymphoma
     Dosage: UNKNOWN DOSE
     Route: 050
     Dates: start: 20230926, end: 20240328

REACTIONS (1)
  - Disseminated tuberculosis [Recovering/Resolving]

NARRATIVE: CASE EVENT DATE: 20240418
